FAERS Safety Report 4467384-X (Version None)
Quarter: 2004Q4

REPORT INFORMATION
  Report Type: 
  Country: None (occurrence: None)
  Receive Date: 20041006
  Receipt Date: 20040929
  Transmission Date: 20050328
  Serious: Yes (Death)
  Sender: FDA-Public Use
  Company Number: PHBS2004JP13026

PATIENT
  Age: 31 Year
  Sex: Female

DRUGS (2)
  1. NEORAL [Suspect]
     Indication: APLASTIC ANAEMIA
     Dosage: 150 MG/DAY
     Route: 048
     Dates: end: 20040101
  2. NEORAL [Suspect]
     Dosage: 25 MG/DAY
     Route: 048

REACTIONS (1)
  - CEREBELLAR HAEMORRHAGE [None]
